FAERS Safety Report 9997927 (Version 1)
Quarter: 2014Q1

REPORT INFORMATION
  Report Type: Spontaneous
  Country: US (occurrence: None)
  Receive Date: 20140224
  Receipt Date: 20140224
  Transmission Date: 20141002
  Serious: Yes (Disabling)
  Sender: FDA-Public Use
  Company Number: PHEH2013US001067

PATIENT
  Age: 60 Year
  Sex: Male

DRUGS (6)
  1. TOBI [Suspect]
     Indication: BRONCHIECTASIS
     Dates: start: 20121005, end: 20121026
  2. TOBI [Suspect]
     Dates: start: 20121005, end: 20121026
  3. ACYCLOVIR (ACICLOVIR) [Concomitant]
  4. ADVAIR (FLUTICASONE PROPIONATE, SALMETEROL XINAFOATE) [Concomitant]
  5. OXYCONTIN (OXYCODONE HYDROCHLORIDE) [Concomitant]
  6. ZOCOR (SIMVASTATIN) [Concomitant]

REACTIONS (2)
  - Cough [None]
  - Dyspnoea [None]
